FAERS Safety Report 10676708 (Version 1)
Quarter: 2014Q4

REPORT INFORMATION
  Report Type: Spontaneous
  Country: US (occurrence: US)
  Receive Date: 20141226
  Receipt Date: 20141226
  Transmission Date: 20150529
  Serious: Yes (Hospitalization, Other)
  Sender: FDA-Public Use
  Company Number: US-PFIZER INC-2014355020

PATIENT
  Age: 33 Year
  Sex: Male

DRUGS (2)
  1. EPHEDRINE [Suspect]
     Active Substance: EPHEDRINE
     Dosage: 1000 MG, 5 TIMES/WK
  2. NICOTINE. [Suspect]
     Active Substance: NICOTINE
     Dosage: UNK

REACTIONS (4)
  - Road traffic accident [Unknown]
  - Drug abuse [Unknown]
  - Abnormal behaviour [Unknown]
  - Nicotine dependence [Unknown]
